FAERS Safety Report 9382966 (Version 1)
Quarter: 2013Q3

REPORT INFORMATION
  Report Type: Spontaneous
  Country: NL (occurrence: NL)
  Receive Date: 20130703
  Receipt Date: 20130703
  Transmission Date: 20140515
  Serious: Yes (Hospitalization)
  Sender: FDA-Public Use
  Company Number: PHHY2013NL067680

PATIENT
  Age: 48 Year
  Sex: Female

DRUGS (1)
  1. METHYLPREDNISOLONE SANDOZ [Suspect]
     Indication: MULTIPLE SCLEROSIS RELAPSE
     Dosage: 1000 MG, UNK
     Route: 042
     Dates: start: 2008

REACTIONS (3)
  - Drug-induced liver injury [Recovered/Resolved]
  - Abdominal pain [Recovered/Resolved]
  - Nausea [Recovered/Resolved]
